FAERS Safety Report 7124750-1 (Version None)
Quarter: 2010Q4

REPORT INFORMATION
  Report Type: 
  Country: None (occurrence: None)
  Receive Date: 20101123
  Receipt Date: 20101123
  Transmission Date: 20110411
  Serious: Yes (Life-Threatening)
  Sender: FDA-Public Use
  Company Number: None

PATIENT
  Age: 59 Year
  Sex: Male
  Weight: 68.0396 kg

DRUGS (11)
  1. OXCARBAZEPINE [Suspect]
     Indication: CONVULSION
     Dosage: 300 MG ONCE PO
     Route: 048
     Dates: start: 20100803, end: 20100803
  2. ENALAPRIL MALEATE [Suspect]
     Indication: HYPERTENSION
     Dosage: 10 MG ONCE PO
     Route: 048
     Dates: start: 20100802, end: 20100802
  3. ABACAVIR [Concomitant]
  4. AMLODIPINE [Concomitant]
  5. ASPIRIN [Concomitant]
  6. CLOPIDOGREL [Concomitant]
  7. HYDROCHLOROTHIAZIDE [Concomitant]
  8. LAMIVUDINE [Concomitant]
  9. POTASSIUM CHLORIDE [Concomitant]
  10. RITONAVIR [Concomitant]
  11. ZOCOR [Concomitant]

REACTIONS (1)
  - ANGIOEDEMA [None]
